FAERS Safety Report 10444837 (Version 2)
Quarter: 2014Q3

REPORT INFORMATION
  Report Type: Report from Study
  Country: BR (occurrence: BR)
  Receive Date: 20140910
  Receipt Date: 20140915
  Transmission Date: 20150326
  Serious: Yes (Other)
  Sender: FDA-Public Use
  Company Number: BR-ABBVIE-14K-020-1280927-00

PATIENT
  Sex: Male
  Weight: 74 kg

DRUGS (3)
  1. UNSPECIFIED MEDICATION [Concomitant]
     Active Substance: UNSPECIFIED INGREDIENT
     Indication: ARTHRITIS
  2. HUMIRA [Suspect]
     Active Substance: ADALIMUMAB
     Indication: RHEUMATOID ARTHRITIS
     Route: 058
     Dates: start: 2008
  3. HUMIRA [Suspect]
     Active Substance: ADALIMUMAB
     Route: 058
     Dates: end: 2010

REACTIONS (12)
  - Immunodeficiency [Recovered/Resolved]
  - Back pain [Recovered/Resolved]
  - Peripheral swelling [Recovering/Resolving]
  - Aneurysm ruptured [Recovered/Resolved with Sequelae]
  - Femoral artery aneurysm [Recovered/Resolved]
  - Erythema [Recovered/Resolved]
  - Postoperative wound infection [Recovered/Resolved with Sequelae]
  - Peripheral arterial occlusive disease [Recovering/Resolving]
  - Pain in extremity [Recovered/Resolved]
  - Gait disturbance [Recovering/Resolving]
  - Peripheral swelling [Recovered/Resolved]
  - Arthralgia [Not Recovered/Not Resolved]
